FAERS Safety Report 14184640 (Version 4)
Quarter: 2017Q4

REPORT INFORMATION
  Report Type: Spontaneous
  Country: IT (occurrence: IT)
  Receive Date: 20171113
  Receipt Date: 20171219
  Transmission Date: 20180321
  Serious: Yes (Hospitalization, Other)
  Sender: FDA-Public Use
  Company Number: IT-PFIZER INC-2017487085

PATIENT
  Age: 76 Year
  Sex: Female
  Weight: 50 kg

DRUGS (14)
  1. PANTOPRAZOLE [Concomitant]
     Active Substance: PANTOPRAZOLE
     Indication: PROPHYLAXIS AGAINST GASTROINTESTINAL ULCER
     Dosage: 20 MG, UNK
     Route: 048
  2. CARVEDILOL. [Concomitant]
     Active Substance: CARVEDILOL
     Indication: MYOCARDIAL ISCHAEMIA
     Dosage: 50 MG, UNK
     Route: 048
  3. FUROSEMIDE. [Concomitant]
     Active Substance: FUROSEMIDE
     Indication: DIURETIC THERAPY
     Dosage: 50 MG, UNK
     Route: 048
  4. LANOXIN [Concomitant]
     Active Substance: DIGOXIN
     Indication: MYOCARDIAL ISCHAEMIA
     Dosage: 125 UG, UNK
     Route: 048
  5. ALLOPURINOL. [Concomitant]
     Active Substance: ALLOPURINOL
     Indication: HYPERURICAEMIA
     Dosage: 300 MG, UNK
     Route: 048
  6. NITROGLYCERINE [Concomitant]
     Active Substance: NITROGLYCERIN
     Dosage: 10 MG, UNK
     Route: 062
  7. RANEXA [Concomitant]
     Active Substance: RANOLAZINE
     Dosage: 1000 MG, UNK
     Route: 048
  8. CARVASIN [Concomitant]
     Active Substance: ISOSORBIDE DINITRATE
     Indication: ANGINA PECTORIS
     Dosage: 5 MG, UNK
     Route: 060
  9. ALDACTONE [Concomitant]
     Active Substance: SPIRONOLACTONE
     Indication: DIURETIC THERAPY
     Dosage: 25 MG, UNK
     Route: 048
  10. COUMADIN [Suspect]
     Active Substance: WARFARIN SODIUM
     Indication: MYOCARDIAL ISCHAEMIA
     Dosage: 5 MG, AS NEEDED
     Route: 048
     Dates: start: 20171012, end: 2017
  11. TORVAST [Suspect]
     Active Substance: ATORVASTATIN
     Indication: MYOCARDIAL ISCHAEMIA
     Dosage: 40 MG, DAILY
     Route: 048
     Dates: start: 20171012, end: 2017
  12. METFORMIN [Concomitant]
     Active Substance: METFORMIN HYDROCHLORIDE
     Indication: DIABETES MELLITUS
     Dosage: 1700 MG, UNK
     Route: 048
  13. AMARYL [Concomitant]
     Active Substance: GLIMEPIRIDE
     Dosage: 1 MG, UNK
     Route: 048
  14. ACETYLSALICYLIC ACID [Concomitant]
     Active Substance: ASPIRIN
     Indication: MYOCARDIAL ISCHAEMIA
     Dosage: 100 MG, UNK
     Route: 048

REACTIONS (4)
  - Gastric haemorrhage [Recovered/Resolved]
  - Overdose [Recovered/Resolved]
  - International normalised ratio increased [Recovered/Resolved]
  - Transaminases increased [Recovered/Resolved]

NARRATIVE: CASE EVENT DATE: 20171013
